FAERS Safety Report 17228599 (Version 1)
Quarter: 2020Q1

REPORT INFORMATION
  Report Type: Spontaneous
  Country: FR (occurrence: FR)
  Receive Date: 20200103
  Receipt Date: 20200103
  Transmission Date: 20200409
  Serious: Yes (Hospitalization)
  Sender: FDA-Public Use
  Company Number: FR-MYLANLABS-2019M1132675

PATIENT
  Age: 53 Year
  Sex: Female

DRUGS (3)
  1. AMOXICILLIN,CLAVULANIC ACID MYLAN [Suspect]
     Active Substance: AMOXICILLIN\CLAVULANIC ACID
     Indication: SINUSITIS
     Dosage: 02 DOSAGE FORM, TID
     Dates: start: 20191222, end: 201912
  2. DYMISTA [Suspect]
     Active Substance: AZELASTINE HYDROCHLORIDE\FLUTICASONE PROPIONATE
     Indication: SINUSITIS
     Dosage: UNK, BID, SPRAY ON THE MORNING AND ON THE EVENING FOR 1 MONTHS
     Dates: start: 20191222, end: 201912
  3. FLANID [Suspect]
     Active Substance: TIAPROFENIC ACID
     Indication: SINUSITIS
     Dosage: 200 MILLIGRAM, TID
     Dates: start: 20191222, end: 201912

REACTIONS (4)
  - Hypersensitivity [Unknown]
  - Lip swelling [Unknown]
  - Dyspnoea [Unknown]
  - Oedema [Unknown]

NARRATIVE: CASE EVENT DATE: 20191222
